FAERS Safety Report 9079789 (Version 3)
Quarter: 2013Q2

REPORT INFORMATION
  Report Type: Spontaneous
  Country: FR (occurrence: FR)
  Receive Date: 20130215
  Receipt Date: 20130409
  Transmission Date: 20140414
  Serious: No
  Sender: FDA-Public Use
  Company Number: FR-GLAXOSMITHKLINE-B0864842A

PATIENT
  Age: 12 Year
  Sex: Male
  Weight: 48 kg

DRUGS (5)
  1. SERETIDE [Suspect]
     Indication: COUGH
     Route: 055
     Dates: start: 20130102, end: 20130102
  2. NASONEX [Concomitant]
     Indication: COUGH
     Route: 045
     Dates: start: 20130102
  3. LEVOCETIRIZINE [Concomitant]
     Route: 048
     Dates: start: 20130102
  4. AMODEX [Concomitant]
     Route: 048
     Dates: start: 20130101, end: 20130107
  5. EXOMUC [Concomitant]
     Route: 048
     Dates: start: 20130102, end: 20130107

REACTIONS (3)
  - Cough [Recovered/Resolved]
  - Drug ineffective [Unknown]
  - Product quality issue [Unknown]
